FAERS Safety Report 18208542 (Version 4)
Quarter: 2020Q4

REPORT INFORMATION
  Report Type: Spontaneous
  Country: US (occurrence: US)
  Receive Date: 20200828
  Receipt Date: 20201120
  Transmission Date: 20210113
  Serious: No
  Sender: FDA-Public Use
  Company Number: US-JNJFOC-20200835578

PATIENT
  Age: 85 Year
  Sex: Male
  Weight: 90.8 kg

DRUGS (1)
  1. MENS ROGAINE EXTRA STRENGTH [Suspect]
     Active Substance: MINOXIDIL
     Indication: ALOPECIA
     Dosage: 3 OF A CUP FULL ONCE A DAY FOR 3 DAYS, THE DATE OF LAST ADMINISTRATION OF PRODUCT ;04-AUG-2020
     Route: 061
     Dates: start: 20200801

REACTIONS (9)
  - Application site pain [Recovering/Resolving]
  - Dermatitis allergic [Recovering/Resolving]
  - Incorrect dose administered [Unknown]
  - Swelling face [Recovering/Resolving]
  - Inappropriate schedule of product administration [Unknown]
  - Alopecia [Unknown]
  - Ear discomfort [Recovering/Resolving]
  - Eye irritation [Recovering/Resolving]
  - Eye swelling [Recovering/Resolving]

NARRATIVE: CASE EVENT DATE: 2020
